FAERS Safety Report 16777162 (Version 1)
Quarter: 2019Q4

REPORT INFORMATION
  Report Type: Spontaneous
  Country: US (occurrence: US)
  Receive Date: 20190905
  Receipt Date: 20190905
  Transmission Date: 20200122
  Serious: No
  Sender: FDA-Public Use
  Company Number: None

PATIENT
  Age: 53 Year
  Sex: Male
  Weight: 116.55 kg

DRUGS (2)
  1. BEXAROTENE. [Suspect]
     Active Substance: BEXAROTENE
     Indication: ADULT T-CELL LYMPHOMA/LEUKAEMIA
     Route: 048
     Dates: start: 20160816, end: 20190905
  2. BEXAROTENE. [Suspect]
     Active Substance: BEXAROTENE
     Indication: HUMAN T-CELL LYMPHOTROPIC VIRUS INFECTION
     Route: 048
     Dates: start: 20160816, end: 20190905

REACTIONS (1)
  - Disease progression [None]

NARRATIVE: CASE EVENT DATE: 20190905
